FAERS Safety Report 7509590-3 (Version None)
Quarter: 2011Q2

REPORT INFORMATION
  Report Type: 
  Country: None (occurrence: None)
  Receive Date: 20110527
  Receipt Date: 20110517
  Transmission Date: 20111010
  Serious: Yes (Other)
  Sender: FDA-Public Use
  Company Number: US-BAYER-200827619NA

PATIENT
  Age: 46 Year
  Sex: Female
  Weight: 60.771 kg

DRUGS (1)
  1. MIRENA [Suspect]
     Indication: CONTRACEPTION
     Dosage: 20 ?G, CONT
     Route: 015
     Dates: start: 20070901, end: 20080901

REACTIONS (3)
  - BLOOD POTASSIUM DECREASED [None]
  - HEPATIC LESION [None]
  - PAIN [None]
